FAERS Safety Report 20184699 (Version 1)
Quarter: 2021Q4

REPORT INFORMATION
  Report Type: Spontaneous
  Country: US (occurrence: US)
  Receive Date: 20211214
  Receipt Date: 20211214
  Transmission Date: 20220303
  Serious: No
  Sender: FDA-Public Use
  Company Number: US-AMGEN-USASP2021195593

PATIENT

DRUGS (2)
  1. MVASI [Suspect]
     Active Substance: BEVACIZUMAB-AWWB
     Indication: Product used for unknown indication
     Dosage: 600 UNK
     Route: 065
     Dates: start: 20211127
  2. DOXORUBICIN [Concomitant]
     Active Substance: DOXORUBICIN
     Dosage: UNK

REACTIONS (1)
  - Product dose omission issue [Unknown]

NARRATIVE: CASE EVENT DATE: 20210101
